FAERS Safety Report 19394676 (Version 1)
Quarter: 2021Q2

REPORT INFORMATION
  Report Type: Spontaneous
  Country: US (occurrence: US)
  Receive Date: 20210609
  Receipt Date: 20210609
  Transmission Date: 20210717
  Serious: No
  Sender: FDA-Public Use
  Company Number: US-ALKERMES INC.-ALK-2021-002835

PATIENT

DRUGS (3)
  1. VIVITROL [Suspect]
     Active Substance: NALTREXONE
     Indication: TREMOR
     Dosage: 380 MILLIGRAM, QMO
     Route: 030
  2. VACCINES [Concomitant]
     Active Substance: UNSPECIFIED INGREDIENT
     Indication: PROPHYLAXIS
     Dosage: UNK, ONE TIME DOSE
     Route: 065
  3. VIVITROL [Suspect]
     Active Substance: NALTREXONE
     Indication: NERVOUSNESS
     Dosage: 380 MILLIGRAM, QMO
     Route: 030
     Dates: start: 20210528

REACTIONS (2)
  - Tremor [Not Recovered/Not Resolved]
  - Anxiety [Not Recovered/Not Resolved]
